FAERS Safety Report 4298506-1 (Version None)
Quarter: 2004Q1

REPORT INFORMATION
  Report Type: 
  Country: None (occurrence: None)
  Receive Date: 20040218
  Receipt Date: 20040123
  Transmission Date: 20041129
  Serious: Yes (Hospitalization)
  Sender: FDA-Public Use
  Company Number: PHBS2004CO01318

PATIENT
  Age: 0 Day
  Sex: Male
  Weight: 4 kg

DRUGS (1)
  1. METHERGINE [Suspect]
     Dosage: 0.2 MG/ML
     Route: 042
     Dates: start: 20040115, end: 20040115

REACTIONS (8)
  - ACCIDENTAL EXPOSURE [None]
  - AGITATION NEONATAL [None]
  - CRYING [None]
  - CYANOSIS NEONATAL [None]
  - MEDICATION ERROR [None]
  - NEONATAL DISORDER [None]
  - TONIC CLONIC MOVEMENTS [None]
  - VASOCONSTRICTION [None]
